FAERS Safety Report 15614793 (Version 3)
Quarter: 2019Q2

REPORT INFORMATION
  Report Type: Report from Study
  Country: FR (occurrence: FR)
  Receive Date: 20181113
  Receipt Date: 20190430
  Transmission Date: 20190711
  Serious: Yes (Life-Threatening, Hospitalization)
  Sender: FDA-Public Use
  Company Number: FR-ROCHE-2131176

PATIENT
  Age: 60 Year
  Sex: Male
  Weight: 84 kg

DRUGS (37)
  1. OBINUTUZUMAB. [Suspect]
     Active Substance: OBINUTUZUMAB
     Indication: NON-HODGKIN^S LYMPHOMA
     Dosage: ON DAYS 2, 8, AND 15 OF CYCLE 1 AND ON DAY 1 OF CYCLES 2 THROUGH 8
     Route: 042
     Dates: start: 20180524, end: 20180524
  2. DIGOXINE [Concomitant]
     Active Substance: DIGOXIN
     Indication: ATRIAL FIBRILLATION
     Route: 048
     Dates: start: 20180528, end: 20180528
  3. BACTRIM [Concomitant]
     Active Substance: SULFAMETHOXAZOLE\TRIMETHOPRIM
     Indication: INFECTION PROPHYLAXIS
     Route: 048
     Dates: start: 20161003
  4. FUROSEMIDE. [Concomitant]
     Active Substance: FUROSEMIDE
     Route: 048
     Dates: start: 20181108, end: 20181109
  5. POTASSIUM CHLORIDE. [Concomitant]
     Active Substance: POTASSIUM CHLORIDE
     Indication: PROPHYLAXIS
     Route: 048
     Dates: start: 20181105, end: 20181109
  6. CC-122 [Suspect]
     Active Substance: AVADOMIDE
     Dosage: ON DAY 1 FOR 5 CONSECUTIVE DAYS FOLLOWED BY 2 DAYS OFF STUDY DRUG EVERY 7 DAYS (5/7-DAY SCHEDULE) IN
     Route: 048
     Dates: start: 20180613, end: 20180616
  7. CC-122 [Suspect]
     Active Substance: AVADOMIDE
     Dosage: ON DAY 1 FOR 5 CONSECUTIVE DAYS FOLLOWED BY 2 DAYS OFF STUDY DRUG EVERY 7 DAYS (5/7-DAY SCHEDULE) IN
     Route: 048
     Dates: start: 20181010, end: 20181031
  8. FILGRASTIM [Concomitant]
     Active Substance: FILGRASTIM
     Dosage: 30 MU
     Route: 058
     Dates: start: 20180821, end: 20180824
  9. VALACICLOVIR [Concomitant]
     Active Substance: VALACYCLOVIR HYDROCHLORIDE
     Indication: PROPHYLAXIS
     Route: 048
     Dates: start: 20161003
  10. SERETIDE [Concomitant]
     Active Substance: FLUTICASONE PROPIONATE\SALMETEROL XINAFOATE
     Indication: ASTHMA
     Route: 055
  11. AVLOCARDYL [PROPRANOLOL] [Concomitant]
     Active Substance: PROPRANOLOL HYDROCHLORIDE
     Route: 048
     Dates: start: 20181105
  12. HIZENTRA [IMMUNOGLOBULIN HUMAN NORMAL] [Concomitant]
     Route: 065
     Dates: start: 20190306, end: 20190306
  13. OBINUTUZUMAB. [Suspect]
     Active Substance: OBINUTUZUMAB
     Dosage: CYCLE 6 DAY 1?DRUG INTERRUPTED ON 31/OCT/2018
     Route: 042
     Dates: start: 20181009, end: 20181009
  14. FILGRASTIM [Concomitant]
     Active Substance: FILGRASTIM
     Indication: NEUTROPENIA
     Dosage: 30 MU
     Route: 058
     Dates: start: 20180817, end: 20180818
  15. ROXITHROMYCINE [Concomitant]
     Active Substance: ROXITHROMYCIN
     Route: 065
     Dates: start: 20181203, end: 20181204
  16. ROVAMYCINE [SPIRAMYCIN] [Concomitant]
     Active Substance: SPIRAMYCIN
     Route: 065
     Dates: start: 20181204, end: 20181205
  17. LEDERFOLINE [Concomitant]
     Active Substance: LEUCOVORIN CALCIUM
     Route: 065
     Dates: start: 20181210
  18. PRIVIGEN [Concomitant]
     Active Substance: HUMAN IMMUNOGLOBULIN G
     Dosage: ONCE
     Route: 065
     Dates: start: 20190130, end: 20190130
  19. OBINUTUZUMAB. [Suspect]
     Active Substance: OBINUTUZUMAB
     Dosage: ON DAYS 2, 8, AND 15 OF CYCLE 1 AND ON DAY 1 OF CYCLES 2 THROUGH 8
     Route: 042
     Dates: start: 20180620
  20. CC-122 [Suspect]
     Active Substance: AVADOMIDE
     Dosage: ON DAY 1 FOR 5 CONSECUTIVE DAYS FOLLOWED BY 2 DAYS OFF STUDY DRUG EVERY 7 DAYS (5/7-DAY SCHEDULE) IN
     Route: 048
     Dates: start: 20190130, end: 20190210
  21. POLARAMINE [Concomitant]
     Active Substance: DEXCHLORPHENIRAMINE MALEATE
     Indication: PREMEDICATION
     Route: 042
     Dates: start: 20180524, end: 20181009
  22. FILGRASTIM [Concomitant]
     Active Substance: FILGRASTIM
     Dosage: 30 MU
     Route: 058
     Dates: start: 20180924, end: 20180925
  23. SALBUTAMOL [Concomitant]
     Active Substance: ALBUTEROL
     Route: 065
     Dates: start: 20181210, end: 20181216
  24. INOTUZUMAB OZOGAMICIN [Suspect]
     Active Substance: INOTUZUMAB OZOGAMICIN
     Indication: NON-HODGKIN^S LYMPHOMA
     Route: 065
  25. AVLOCARDYL [PROPRANOLOL] [Concomitant]
     Active Substance: PROPRANOLOL HYDROCHLORIDE
     Indication: PORTAL HYPERTENSION
     Route: 048
     Dates: end: 20180528
  26. NORFLOXACIN [Concomitant]
     Active Substance: NORFLOXACIN
     Indication: INFECTION PROPHYLAXIS
     Route: 048
     Dates: start: 20180530, end: 20180601
  27. ALDACTONE [Concomitant]
     Active Substance: SPIRONOLACTONE
     Indication: ASCITES
     Route: 048
     Dates: start: 20180604, end: 20180612
  28. PARACETAMOL [Concomitant]
     Active Substance: ACETAMINOPHEN
     Indication: PREMEDICATION
     Route: 048
     Dates: start: 20180524, end: 20181009
  29. FILGRASTIM [Concomitant]
     Active Substance: FILGRASTIM
     Dosage: 30 MU
     Route: 058
     Dates: start: 20181101, end: 20181104
  30. FUROSEMIDE. [Concomitant]
     Active Substance: FUROSEMIDE
     Indication: ATRIAL FIBRILLATION
     Route: 048
     Dates: start: 20181105, end: 20181107
  31. ALDACTONE [Concomitant]
     Active Substance: SPIRONOLACTONE
     Indication: OEDEMA PERIPHERAL
  32. METHYLPREDNISOLONE. [Concomitant]
     Active Substance: METHYLPREDNISOLONE
     Indication: PREMEDICATION
     Route: 042
     Dates: start: 20180524, end: 20181009
  33. BISOPROLOL [Concomitant]
     Active Substance: BISOPROLOL
     Indication: ATRIAL FIBRILLATION
     Route: 048
     Dates: start: 20181105, end: 20181105
  34. FUROSEMIDE. [Concomitant]
     Active Substance: FUROSEMIDE
     Route: 048
     Dates: start: 20190306
  35. CC-122 [Suspect]
     Active Substance: AVADOMIDE
     Indication: NON-HODGKIN^S LYMPHOMA
     Dosage: ON DAY 1 OF EACH CYCLE UNTIL CYCLE 6?DOSE INTERRUPTED ON 25/MAY/2018
     Route: 048
     Dates: start: 20180523, end: 20180525
  36. AVLOCARDYL [PROPRANOLOL] [Concomitant]
     Active Substance: PROPRANOLOL HYDROCHLORIDE
     Route: 048
     Dates: start: 20180601, end: 20181101
  37. FILGRASTIM [Concomitant]
     Active Substance: FILGRASTIM
     Dosage: 48 MU
     Route: 058
     Dates: start: 20190207, end: 20190216

REACTIONS (6)
  - Lung infection [Recovered/Resolved]
  - Pyrexia [Recovered/Resolved]
  - Oesophageal varices haemorrhage [Recovered/Resolved]
  - Transitional cell carcinoma [Recovered/Resolved]
  - Sepsis [Recovered/Resolved]
  - Escherichia sepsis [Recovered/Resolved]

NARRATIVE: CASE EVENT DATE: 20180526
